FAERS Safety Report 5870679-6 (Version None)
Quarter: 2008Q3

REPORT INFORMATION
  Report Type: 
  Country: None (occurrence: None)
  Receive Date: 20080904
  Receipt Date: 20080904
  Transmission Date: 20090109
  Serious: Yes (Hospitalization)
  Sender: FDA-Public Use
  Company Number: PHEH1996US06043

PATIENT
  Sex: Male
  Weight: 82.3 kg

DRUGS (4)
  1. NEORAL [Suspect]
     Route: 048
     Dates: start: 19941208
  2. PREDNISONE [Concomitant]
     Dosage: UNSPECIFIED
     Route: 065
  3. IMURAN [Suspect]
     Dosage: UNSPECIFIED
     Route: 065
  4. SOLU-MEDROL [Concomitant]
     Dosage: UNSPECIFIED
     Route: 065

REACTIONS (2)
  - BLOOD CREATININE INCREASED [None]
  - PYREXIA [None]
